FAERS Safety Report 6200061-3 (Version None)
Quarter: 2009Q2

REPORT INFORMATION
  Report Type: 
  Country: None (occurrence: None)
  Receive Date: 20090518
  Receipt Date: 20090304
  Transmission Date: 20091009
  Serious: No
  Sender: FDA-Public Use
  Company Number: WAES 0808USA01253

PATIENT
  Age: 55 Year
  Sex: Female

DRUGS (5)
  1. JANUVIA [Suspect]
     Indication: TYPE 2 DIABETES MELLITUS
     Dosage: PO
     Route: 048
     Dates: start: 20080717
  2. GLUMETZA [Suspect]
     Indication: TYPE 2 DIABETES MELLITUS
     Dates: start: 20080717
  3. SYMLINPEN UNK [Suspect]
     Dosage: 120 MICROGM/TID/SC; 60 MICROGM/TID/SC
     Route: 058
     Dates: start: 20080401, end: 20080401
  4. SYMLINPEN UNK [Suspect]
     Dosage: 120 MICROGM/TID/SC; 60 MICROGM/TID/SC
     Route: 058
     Dates: start: 20080401
  5. BYETTA [Concomitant]

REACTIONS (2)
  - BLOOD GLUCOSE INCREASED [None]
  - FATIGUE [None]
